FAERS Safety Report 20626771 (Version 1)
Quarter: 2022Q1

REPORT INFORMATION
  Report Type: Report from Study
  Country: US (occurrence: None)
  Receive Date: 20220323
  Receipt Date: 20220323
  Transmission Date: 20220423
  Serious: Yes (Hospitalization)
  Sender: FDA-Public Use
  Company Number: US-ROCHE-596036

PATIENT
  Age: 68 Year
  Sex: Female

DRUGS (3)
  1. BEVACIZUMAB [Suspect]
     Active Substance: BEVACIZUMAB
     Indication: Ovarian epithelial cancer
     Dosage: GIVEN OVER 30-90 MIN ON DAY 1 OF EACH 21-DAY CYCLE.?LAST ADMINISTRATION DATE: 22/AUG/2008
     Route: 042
     Dates: start: 20080801
  2. PACLITAXEL [Suspect]
     Active Substance: PACLITAXEL
     Indication: Ovarian epithelial cancer
     Dosage: GIVEN OVER 3 HOURS ON DAY 1 OF EACH 21-DAY CYCLE OR IV DOCETAXEL 75MG/M2 OVER 1 HOUR ON DAY 1.
     Route: 042
     Dates: start: 20080801
  3. CARBOPLATIN [Suspect]
     Active Substance: CARBOPLATIN
     Indication: Ovarian epithelial cancer
     Dosage: AREA UNDER THE CURVE 5 GIVEN OVER 30 MIN ON DAY 1 EVERY 21 DAYS CYCLE.
     Route: 042
     Dates: start: 20080801

REACTIONS (1)
  - Myocardial infarction [Recovered/Resolved]

NARRATIVE: CASE EVENT DATE: 20080911
